FAERS Safety Report 5264998-4 (Version None)
Quarter: 2007Q1

REPORT INFORMATION
  Report Type: 
  Country: None (occurrence: None)
  Receive Date: 20070314
  Receipt Date: 20070301
  Transmission Date: 20070707
  Serious: Yes (Hospitalization)
  Sender: FDA-Public Use
  Company Number: PHBS2007ES03640

PATIENT
  Age: 47 Year
  Sex: Female

DRUGS (3)
  1. GLEEVEC [Suspect]
     Indication: CHRONIC MYELOID LEUKAEMIA
     Dosage: 400 MG/D
     Route: 048
     Dates: start: 20020101
  2. ZOLPIDEM [Concomitant]
     Indication: ANXIETY
     Route: 065
  3. OMEPRAZOLE [Concomitant]
     Route: 065

REACTIONS (7)
  - ANXIETY [None]
  - DIARRHOEA [None]
  - HEADACHE [None]
  - HYPERREFLEXIA [None]
  - HYPOKALAEMIA [None]
  - TREMOR [None]
  - WEIGHT DECREASED [None]
